FAERS Safety Report 5097903-4 (Version None)
Quarter: 2006Q3

REPORT INFORMATION
  Report Type: 
  Country: None (occurrence: None)
  Receive Date: 20060905
  Receipt Date: 20060905
  Transmission Date: 20061208
  Serious: Yes (Other)
  Sender: FDA-Public Use
  Company Number: None

PATIENT
  Age: 42 Year
  Sex: Male
  Weight: 83.2 kg

DRUGS (8)
  1. HYDROXYCHLOROQUINE SULFATE [Suspect]
     Indication: SYSTEMIC LUPUS ERYTHEMATOSUS
     Dosage: 200 MG BID PO
     Route: 048
     Dates: start: 20060723, end: 20060725
  2. PREDNISONE TAB [Concomitant]
  3. IPRATROPIUM BROMIDE [Concomitant]
  4. BACTRIM [Concomitant]
  5. ENOXAPARIN SODIUM [Concomitant]
  6. MS CONTIN [Concomitant]
  7. MORPHINE [Concomitant]
  8. WARFARIN SODIUM [Concomitant]

REACTIONS (1)
  - HEPATIC ENZYME INCREASED [None]
